FAERS Safety Report 23293183 (Version 8)
Quarter: 2024Q3

REPORT INFORMATION
  Report Type: Spontaneous
  Country: US (occurrence: US)
  Receive Date: 20231213
  Receipt Date: 20240910
  Transmission Date: 20241016
  Serious: Yes (Other)
  Sender: PFIZER
  Company Number: US-PFIZER INC-PV202300197543

PATIENT
  Age: 65 Year
  Sex: Male
  Weight: 108.84 kg

DRUGS (2)
  1. BRAFTOVI [Suspect]
     Active Substance: ENCORAFENIB
     Indication: Metastatic malignant melanoma
     Dosage: SIX 75 MG CAPSULES DAILY
     Route: 048
     Dates: start: 2020
  2. MEKTOVI [Suspect]
     Active Substance: BINIMETINIB
     Indication: Metastatic malignant melanoma
     Dosage: THREE 15 MG TABLETS TWICE DAILY
     Route: 048
     Dates: start: 2020

REACTIONS (5)
  - Pulmonary embolism [Not Recovered/Not Resolved]
  - Essential hypertension [Not Recovered/Not Resolved]
  - Electrocardiogram abnormal [Not Recovered/Not Resolved]
  - Nausea [Unknown]
  - Constipation [Unknown]

NARRATIVE: CASE EVENT DATE: 20200513
